FAERS Safety Report 5486862-8 (Version None)
Quarter: 2007Q4

REPORT INFORMATION
  Report Type: 
  Country: None (occurrence: None)
  Receive Date: 20071016
  Receipt Date: 20071009
  Transmission Date: 20080405
  Serious: Yes (Hospitalization)
  Sender: FDA-Public Use
  Company Number: CA-ASTRAZENECA-2007UW23739

PATIENT
  Age: 26652 Day
  Sex: Male
  Weight: 91 kg

DRUGS (1)
  1. CRESTOR [Suspect]
     Route: 048
     Dates: start: 20041016, end: 20071001

REACTIONS (1)
  - NEPHROTIC SYNDROME [None]
